FAERS Safety Report 6166088-5 (Version None)
Quarter: 2009Q2

REPORT INFORMATION
  Report Type: 
  Country: None (occurrence: None)
  Receive Date: 20090424
  Receipt Date: 20090421
  Transmission Date: 20091009
  Serious: Yes (Hospitalization, Other)
  Sender: FDA-Public Use
  Company Number: US-ASTRAZENECA-2009UW09469

PATIENT
  Age: 76 Year
  Sex: Female
  Weight: 58.1 kg

DRUGS (5)
  1. ARIMIDEX [Suspect]
     Route: 048
     Dates: start: 20060101
  2. LISINOPRIL [Concomitant]
     Route: 048
  3. SYNTHROID [Concomitant]
  4. VITAMIN E [Concomitant]
  5. OSCAL [Concomitant]

REACTIONS (3)
  - AORTIC DISORDER [None]
  - CARDIAC DISORDER [None]
  - MITRAL VALVE INCOMPETENCE [None]
